FAERS Safety Report 5264977-7 (Version None)
Quarter: 2007Q1

REPORT INFORMATION
  Report Type: 
  Country: None (occurrence: None)
  Receive Date: 20061122
  Receipt Date: 20061012
  Transmission Date: 20070707
  Serious: Yes (Hospitalization)
  Sender: FDA-Public Use
  Company Number: US-JNJFOC-20060803249

PATIENT
  Age: 23 Year
  Sex: Male
  Weight: 88.4514 kg

DRUGS (9)
  1. RISPERDAL CONSTA [Suspect]
     Indication: BIPOLAR DISORDER
     Dosage: SEE IMAGE
     Route: 030
     Dates: start: 20060623, end: 20060723
  2. RISPERDAL CONSTA [Suspect]
     Indication: SCHIZOAFFECTIVE DISORDER
     Dosage: SEE IMAGE
     Route: 030
     Dates: start: 20060623, end: 20060723
  3. RISPERDAL [Suspect]
     Indication: BIPOLAR DISORDER
     Dosage: SEE IMAGE
     Dates: start: 20060711, end: 20060821
  4. RISPERDAL [Suspect]
     Indication: SCHIZOAFFECTIVE DISORDER
     Dosage: SEE IMAGE
     Dates: start: 20060711, end: 20060821
  5. RISPERDAL [Suspect]
     Indication: BIPOLAR DISORDER
     Dosage: SEE IMAGE
     Dates: start: 20060701
  6. RISPERDAL [Suspect]
     Indication: SCHIZOAFFECTIVE DISORDER
     Dosage: SEE IMAGE
     Dates: start: 20060701
  7. DEPAKOTE [Concomitant]
  8. INDERAL [Concomitant]
  9. TRAZODONE (TRAZODONE) TABLETS [Concomitant]

REACTIONS (7)
  - DELUSION [None]
  - HALLUCINATION [None]
  - HYPOTENSION [None]
  - INSOMNIA [None]
  - PARANOIA [None]
  - SOMNOLENCE [None]
  - WEIGHT DECREASED [None]
